FAERS Safety Report 8938491 (Version 2)
Quarter: 2013Q1

REPORT INFORMATION
  Report Type: Report from Study
  Country: DE (occurrence: DE)
  Receive Date: 20121203
  Receipt Date: 20130311
  Transmission Date: 20140127
  Serious: Yes (Hospitalization)
  Sender: FDA-Public Use
  Company Number: PHHO2012DE016573

PATIENT
  Age: 54 Year
  Sex: Female
  Weight: 56 kg

DRUGS (9)
  1. EVEROLIMUS [Suspect]
     Indication: BREAST CANCER METASTATIC
     Dosage: 10 MG, QD
     Route: 048
     Dates: start: 20120902, end: 20121021
  2. ZOLEDRONATE [Suspect]
     Dosage: 4 MG, QMO
     Dates: start: 20110214, end: 20121001
  3. EXEMESTANE [Suspect]
     Indication: BREAST CANCER METASTATIC
     Dosage: 25 MG, QD
     Dates: start: 20120902, end: 20121112
  4. TAVANIC [Concomitant]
     Indication: SINUSITIS
     Dosage: 500 MG, 1-0-0
     Dates: start: 20121011, end: 20121020
  5. VOLTAREN ^CIBA-GEIGY^ [Concomitant]
     Indication: PAIN
     Dosage: 50 MG, 1-1-1
     Dates: start: 20121025
  6. CEFUROXIN [Concomitant]
     Indication: SINUSITIS
     Dosage: 500 MG,1-0-1
     Dates: start: 20121031
  7. TILIDIN [Concomitant]
     Indication: PAIN
     Dosage: 1 DF, BID (100/8 MG 1-0-1)
     Dates: start: 20121105
  8. ANTIBIOTICS [Concomitant]
  9. FLUPIRTINMALEAT WINTHROP [Concomitant]
     Indication: PAIN
     Dosage: 100 MG, 1-0-1
     Dates: start: 20121108

REACTIONS (1)
  - Orbital infection [Recovering/Resolving]
